FAERS Safety Report 23782068 (Version 4)
Quarter: 2025Q1

REPORT INFORMATION
  Report Type: Report from Study
  Country: MX (occurrence: MX)
  Receive Date: 20240425
  Receipt Date: 20250106
  Transmission Date: 20250408
  Serious: Yes (Other)
  Sender: TAKEDA
  Company Number: MX-TAKEDA-2022TUS010042

PATIENT
  Age: 64 Year
  Sex: Female

DRUGS (7)
  1. ICATIBANT [Suspect]
     Active Substance: ICATIBANT ACETATE
     Indication: Hereditary angioedema
  2. ICATIBANT [Suspect]
     Active Substance: ICATIBANT ACETATE
  3. TAKHZYRO [Suspect]
     Active Substance: LANADELUMAB-FLYO
     Indication: Hereditary angioedema
  4. TAKHZYRO [Suspect]
     Active Substance: LANADELUMAB-FLYO
  5. TAKHZYRO [Suspect]
     Active Substance: LANADELUMAB-FLYO
  6. HAEGARDA [Suspect]
     Active Substance: HUMAN C1-ESTERASE INHIBITOR
     Indication: Hereditary angioedema
  7. RUCONEST [Concomitant]
     Active Substance: CONESTAT ALFA

REACTIONS (17)
  - Acne [Recovered/Resolved]
  - Somnolence [Unknown]
  - Fatigue [Unknown]
  - Decreased appetite [Unknown]
  - Bone pain [Unknown]
  - Arthralgia [Unknown]
  - Pain in extremity [Unknown]
  - Bone pain [Unknown]
  - Prescription drug used without a prescription [Unknown]
  - Product use issue [Unknown]
  - Arthropod sting [Unknown]
  - Fall [Recovered/Resolved]
  - Peripheral swelling [Recovered/Resolved]
  - Vision blurred [Not Recovered/Not Resolved]
  - Hereditary angioedema [Recovered/Resolved]
  - Nausea [Recovered/Resolved]
  - Headache [Unknown]

NARRATIVE: CASE EVENT DATE: 20240411
